FAERS Safety Report 8850783 (Version 1)
Quarter: 2012Q4

REPORT INFORMATION
  Report Type: 
  Country: GB (occurrence: GB)
  Receive Date: 20121019
  Receipt Date: 20121019
  Transmission Date: 20130627
  Serious: Yes (Hospitalization)
  Sender: FDA-Public Use
  Company Number: GB-ELI_LILLY_AND_COMPANY-GB201210002974

PATIENT
  Sex: Female

DRUGS (1)
  1. TERIPARATIDE [Suspect]

REACTIONS (1)
  - Fall [Unknown]
